FAERS Safety Report 4891982-2 (Version None)
Quarter: 2006Q1

REPORT INFORMATION
  Report Type: 
  Country: None (occurrence: None)
  Receive Date: 20060123
  Receipt Date: 20060112
  Transmission Date: 20060701
  Serious: Yes (Hospitalization)
  Sender: FDA-Public Use
  Company Number: GXKR2006CH00460

PATIENT
  Sex: Male

DRUGS (1)
  1. CIPROFLOXACIN SANDOZ (NGX) (CIPROFLOXACIN) UNKNOWN [Suspect]
     Indication: ABDOMINAL PAIN UPPER
     Dates: start: 20050801

REACTIONS (2)
  - HYPERSENSITIVITY [None]
  - PULMONARY FIBROSIS [None]
